FAERS Safety Report 6122945-7 (Version None)
Quarter: 2009Q1

REPORT INFORMATION
  Report Type: 
  Country: None (occurrence: None)
  Receive Date: 20090318
  Receipt Date: 20080512
  Transmission Date: 20090719
  Serious: No
  Sender: FDA-Public Use
  Company Number: US-AMGEN-KDL278945

PATIENT
  Sex: Female

DRUGS (7)
  1. NEULASTA [Suspect]
     Indication: CHEMOTHERAPY
     Dates: start: 20080510
  2. DEXAMETHASONE TAB [Concomitant]
     Route: 048
  3. LEVOTHYROXINE SODIUM [Concomitant]
  4. BONIVA [Concomitant]
  5. HYDROCODONE [Concomitant]
  6. GEMZAR [Concomitant]
     Dates: start: 20080502
  7. TAXOTERE [Concomitant]

REACTIONS (6)
  - DECREASED ACTIVITY [None]
  - EAR DISCOMFORT [None]
  - OROPHARYNGEAL PAIN [None]
  - PAIN [None]
  - PARAESTHESIA [None]
  - SENSATION OF PRESSURE [None]
